FAERS Safety Report 4682160-0 (Version None)
Quarter: 2005Q2

REPORT INFORMATION
  Report Type: 
  Country: None (occurrence: None)
  Receive Date: 20050603
  Receipt Date: 20050603
  Transmission Date: 20051028
  Serious: Yes (Life-Threatening, Hospitalization)
  Sender: FDA-Public Use
  Company Number: None

PATIENT
  Sex: Female
  Weight: 63.5036 kg

DRUGS (1)
  1. ZOLOFT [Suspect]
     Indication: DEPRESSION
     Dosage: 100 MGS   DAILY   ORAL;  50 MGS  DAILY  ORAL
     Route: 048
     Dates: start: 20030401, end: 20041004

REACTIONS (33)
  - ABDOMINAL PAIN UPPER [None]
  - ANGER [None]
  - APATHY [None]
  - ASTHENIA [None]
  - ATTENTION DEFICIT/HYPERACTIVITY DISORDER [None]
  - BLEPHAROSPASM [None]
  - CONVERSION DISORDER [None]
  - CRYING [None]
  - DECREASED APPETITE [None]
  - DEPRESSION [None]
  - DISTURBANCE IN ATTENTION [None]
  - DRUG DEPENDENCE [None]
  - DRUG WITHDRAWAL SYNDROME [None]
  - DYSPHEMIA [None]
  - EMOTIONAL DISORDER [None]
  - EYE IRRITATION [None]
  - FEELING ABNORMAL [None]
  - HYPERSOMNIA [None]
  - INAPPROPRIATE AFFECT [None]
  - INFLUENZA [None]
  - LOSS OF EMPLOYMENT [None]
  - MENTAL DISORDER [None]
  - NERVOUS SYSTEM DISORDER [None]
  - OVERDOSE [None]
  - PAIN [None]
  - PERSONALITY CHANGE [None]
  - RASH [None]
  - SKIN DISORDER [None]
  - SUICIDAL IDEATION [None]
  - THINKING ABNORMAL [None]
  - VISION BLURRED [None]
  - VISUAL FIELD DEFECT [None]
  - WEIGHT FLUCTUATION [None]
